FAERS Safety Report 8829547 (Version 2)
Quarter: 2013Q4

REPORT INFORMATION
  Report Type: Spontaneous
  Country: US (occurrence: US)
  Receive Date: 20121008
  Receipt Date: 20131213
  Transmission Date: 20140711
  Serious: Yes (Death)
  Sender: FDA-Public Use
  Company Number: US-BAXTER-2012BAX019218

PATIENT
  Age: 65 Year
  Sex: Female

DRUGS (3)
  1. CEFTRIAXONE INJECTION, USP (IN DEXTROSE) [Suspect]
     Indication: URINARY TRACT INFECTION
     Route: 042
  2. VANCOMYCIN INJECTION, USP [Suspect]
     Indication: PYREXIA
     Route: 042
  3. PIPERACILLIN + TAZOBACTAM [Suspect]
     Indication: PYREXIA
     Route: 042

REACTIONS (1)
  - Thrombocytopenia [Fatal]
